FAERS Safety Report 21621210 (Version 7)
Quarter: 2024Q3

REPORT INFORMATION
  Report Type: Spontaneous
  Country: US (occurrence: US)
  Receive Date: 20221121
  Receipt Date: 20240928
  Transmission Date: 20241017
  Serious: Yes (Other)
  Sender: CELLTRION
  Company Number: US-CELLTRION INC.-2022US019165

PATIENT

DRUGS (2)
  1. INFLECTRA [Suspect]
     Active Substance: INFLIXIMAB-DYYB
     Indication: Pyoderma gangrenosum
     Dosage: 5 MG/KG, MONTHLY (LAST DOSE REPORTED WAS ON 25 AUG 2022)
     Route: 065
     Dates: start: 2021, end: 20220825
  2. INFLECTRA [Suspect]
     Active Substance: INFLIXIMAB-DYYB
     Dosage: 100 MG VIAL
     Route: 065

REACTIONS (5)
  - Pyoderma gangrenosum [Unknown]
  - Mass [Unknown]
  - Hypertrophy [Unknown]
  - Therapeutic response increased [Unknown]
  - Drug ineffective for unapproved indication [Unknown]
